FAERS Safety Report 4314873-4 (Version None)
Quarter: 2004Q1

REPORT INFORMATION
  Report Type: 
  Country: None (occurrence: None)
  Receive Date: 20040310
  Receipt Date: 20040302
  Transmission Date: 20041129
  Serious: Yes (Hospitalization)
  Sender: FDA-Public Use
  Company Number: PHBS2004SE02933

PATIENT
  Age: 73 Year
  Sex: Male

DRUGS (8)
  1. ZOMETA [Suspect]
     Indication: PROSTATE CANCER METASTATIC
     Route: 065
     Dates: start: 20030919
  2. VIOXX [Suspect]
     Indication: PROSTATE CANCER METASTATIC
     Route: 065
     Dates: start: 20021201
  3. ARANESP [Concomitant]
     Dosage: 30 UG
     Route: 065
  4. OXYNORM [Concomitant]
     Dosage: 5 MG
     Route: 065
  5. ZOLADEX [Concomitant]
     Dosage: 3.6 MG
  6. PRIMPERAN INJ [Concomitant]
     Dosage: 10 MG
     Route: 048
  7. LOMIR [Concomitant]
     Dosage: 2.5 MG
     Route: 048
  8. OXYCONTIN [Concomitant]
     Dosage: 10 MG
     Route: 048

REACTIONS (1)
  - HYPERKALAEMIA [None]
